FAERS Safety Report 9313891 (Version 3)
Quarter: 2013Q3

REPORT INFORMATION
  Report Type: Spontaneous
  Country: US (occurrence: US)
  Receive Date: 20130529
  Receipt Date: 20130812
  Transmission Date: 20140515
  Serious: No
  Sender: FDA-Public Use
  Company Number: US-BIOGENIDEC-2013BI047575

PATIENT
  Age: 53 Year
  Sex: Female

DRUGS (3)
  1. TYSABRI [Suspect]
     Indication: CROHN^S DISEASE
     Route: 042
     Dates: start: 20121226
  2. TYSABRI [Suspect]
     Indication: CROHN^S DISEASE
     Route: 042
     Dates: end: 20130418
  3. TYSABRI [Suspect]
     Indication: CROHN^S DISEASE
     Route: 042

REACTIONS (2)
  - Drug specific antibody present [Unknown]
  - Drug ineffective [Not Recovered/Not Resolved]
